FAERS Safety Report 7331174-0 (Version None)
Quarter: 2011Q1

REPORT INFORMATION
  Report Type: 
  Country: None (occurrence: None)
  Receive Date: 20110228
  Receipt Date: 20110228
  Transmission Date: 20110831
  Serious: Yes (Life-Threatening)
  Sender: FDA-Public Use
  Company Number: None

PATIENT
  Age: 6 Year
  Sex: Male
  Weight: 31.7518 kg

DRUGS (1)
  1. FOCALIN XR [Suspect]
     Indication: ATTENTION DEFICIT/HYPERACTIVITY DISORDER
     Dosage: INNITAIL 5MG ONCE DAILY PO; 10MG ONCE DAILY PO
     Route: 048
     Dates: start: 20110204, end: 20110227

REACTIONS (5)
  - DEPRESSION [None]
  - DECREASED INTEREST [None]
  - APPARENT DEATH [None]
  - ABDOMINAL PAIN UPPER [None]
  - MENTAL STATUS CHANGES [None]
